FAERS Safety Report 8003051-3 (Version None)
Quarter: 2011Q4

REPORT INFORMATION
  Report Type: 
  Country: None (occurrence: None)
  Receive Date: 20111222
  Receipt Date: 20111215
  Transmission Date: 20120403
  Serious: Yes (Hospitalization)
  Sender: FDA-Public Use
  Company Number: TR-ELI_LILLY_AND_COMPANY-TR201112004197

PATIENT
  Sex: Female
  Weight: 49 kg

DRUGS (2)
  1. HUMALOG [Suspect]
     Indication: TYPE 1 DIABETES MELLITUS
     Dosage: UNK
  2. HUMALOG [Suspect]

REACTIONS (2)
  - WRONG DRUG ADMINISTERED [None]
  - DIABETIC KETOACIDOSIS [None]
